FAERS Safety Report 4454531-9 (Version None)
Quarter: 2004Q3

REPORT INFORMATION
  Report Type: 
  Country: None (occurrence: None)
  Receive Date: 20040917
  Receipt Date: 20040917
  Transmission Date: 20050211
  Serious: Yes (Hospitalization, Disabling)
  Sender: FDA-Public Use
  Company Number: None

PATIENT
  Sex: Female
  Weight: 54.4316 kg

DRUGS (1)
  1. ACCUTANE [Suspect]
     Indication: ACNE
     Dosage: CANT REMEMB DAILY FOR 6 ORAL
     Route: 048
     Dates: start: 19910601, end: 19921201

REACTIONS (38)
  - ABORTION SPONTANEOUS [None]
  - ACQUIRED IMMUNODEFICIENCY SYNDROME [None]
  - ALLERGY TO CHEMICALS [None]
  - ANTINUCLEAR ANTIBODY POSITIVE [None]
  - ANXIETY [None]
  - ARTHRALGIA [None]
  - AUTOIMMUNE DISORDER [None]
  - B-LYMPHOCYTE COUNT DECREASED [None]
  - BEDRIDDEN [None]
  - BRAIN OEDEMA [None]
  - CHEST PAIN [None]
  - CHRONIC FATIGUE SYNDROME [None]
  - CONVULSION [None]
  - DRUG EXPOSURE DURING PREGNANCY [None]
  - EJECTION FRACTION DECREASED [None]
  - EPSTEIN-BARR VIRUS INFECTION [None]
  - FIBROMYALGIA [None]
  - FOOD ALLERGY [None]
  - HYPERHIDROSIS [None]
  - HYPERVITAMINOSIS A [None]
  - HYPOGLYCAEMIA [None]
  - HYPOTHYROIDISM [None]
  - INFERTILITY [None]
  - INSOMNIA [None]
  - IRRITABLE BOWEL SYNDROME [None]
  - JOINT SWELLING [None]
  - LYMPHOEDEMA [None]
  - MIGRAINE [None]
  - PAIN [None]
  - PARALYSIS [None]
  - RAYNAUD'S PHENOMENON [None]
  - RENAL DISORDER [None]
  - SKIN DISCOLOURATION [None]
  - SPINAL DISORDER [None]
  - SUICIDAL IDEATION [None]
  - SWELLING [None]
  - TACHYCARDIA [None]
  - THERAPEUTIC AGENT TOXICITY [None]
